FAERS Safety Report 9848811 (Version 1)
Quarter: 2014Q1

REPORT INFORMATION
  Report Type: Spontaneous
  Country: US (occurrence: None)
  Receive Date: 20140124
  Receipt Date: 20140124
  Transmission Date: 20141002
  Serious: Yes (Other)
  Sender: FDA-Public Use
  Company Number: None

PATIENT
  Age: 45 Year
  Sex: Female

DRUGS (1)
  1. FLUOXETINE [Suspect]
     Indication: DEPRESSION
     Route: 048
     Dates: start: 20131206, end: 20131212

REACTIONS (8)
  - Electrocardiogram abnormal [None]
  - Polydipsia psychogenic [None]
  - Blood sodium decreased [None]
  - Blood chloride decreased [None]
  - Pupillary reflex impaired [None]
  - Specific gravity urine decreased [None]
  - Electrocardiogram QT prolonged [None]
  - Sinus tachycardia [None]
